FAERS Safety Report 8578049-7 (Version None)
Quarter: 2012Q3

REPORT INFORMATION
  Report Type: 
  Country: None (occurrence: None)
  Receive Date: 20120808
  Receipt Date: 20120803
  Transmission Date: 20120928
  Serious: Yes (Other)
  Sender: FDA-Public Use
  Company Number: PHHY2012BR040587

PATIENT
  Sex: Male

DRUGS (4)
  1. DIOVAN HCT [Suspect]
     Indication: HYPERTENSION
     Dosage: 1 DF (160 MG VAL/12.5 MG HCT) DAILY
     Route: 048
  2. DIOVAN HCT [Suspect]
     Dosage: 1 DF(320 MG VAL/25 MG HCT) DAILY
  3. DIOVAN HCT [Suspect]
     Dosage: 1 DF(160 MG VAL/25 MG HCT) DAILY
     Route: 048
  4. METFORMIN HCL [Suspect]
     Dosage: 1 DF (1000/50 MG)DAILY
     Route: 048

REACTIONS (6)
  - NERVOUSNESS [None]
  - BLOOD PRESSURE INCREASED [None]
  - DIABETES MELLITUS [None]
  - DRUG INEFFECTIVE [None]
  - ROAD TRAFFIC ACCIDENT [None]
  - LOSS OF EMPLOYMENT [None]
